FAERS Safety Report 16655478 (Version 1)
Quarter: 2019Q3

REPORT INFORMATION
  Report Type: Spontaneous
  Country: US (occurrence: US)
  Receive Date: 20190617
  Receipt Date: 20190617
  Transmission Date: 20191004
  Serious: Yes (Hospitalization)
  Sender: FDA-Public Use
  Company Number: None

PATIENT
  Age: 69 Year
  Sex: Male
  Weight: 90.58 kg

DRUGS (2)
  1. CEFEPIME [Suspect]
     Active Substance: CEFEPIME HYDROCHLORIDE
     Indication: PYOMYOSITIS
     Route: 042
     Dates: start: 20190119, end: 20190308
  2. CEFEPIME [Suspect]
     Active Substance: CEFEPIME HYDROCHLORIDE
     Indication: CELLULITIS
     Route: 042
     Dates: start: 20190119, end: 20190308

REACTIONS (7)
  - Post procedural infection [None]
  - Acute kidney injury [None]
  - Mental status changes [None]
  - Leg amputation [None]
  - Candida infection [None]
  - Enterococcal infection [None]
  - Dehydration [None]

NARRATIVE: CASE EVENT DATE: 20190308
